FAERS Safety Report 5987351-4 (Version None)
Quarter: 2008Q4

REPORT INFORMATION
  Report Type: 
  Country: None (occurrence: None)
  Receive Date: 20081209
  Receipt Date: 20081201
  Transmission Date: 20090506
  Serious: Yes (Other)
  Sender: FDA-Public Use
  Company Number: PHNU2008DE01446

PATIENT
  Sex: Male

DRUGS (1)
  1. GLEEVEC [Suspect]
     Indication: CHRONIC MYELOID LEUKAEMIA
     Dosage: 400 MG/DAY
     Route: 048
     Dates: start: 20041223

REACTIONS (6)
  - CHOLECYSTECTOMY [None]
  - CHOLELITHIASIS [None]
  - GASTRIC DISORDER [None]
  - GASTRIC POLYPECTOMY [None]
  - GASTRIC POLYPS [None]
  - GASTRITIS [None]
